FAERS Safety Report 22660717 (Version 1)
Quarter: 2023Q2

REPORT INFORMATION
  Report Type: Spontaneous
  Country: US (occurrence: US)
  Receive Date: 20230630
  Receipt Date: 20230630
  Transmission Date: 20230722
  Serious: No
  Sender: FDA-Public Use
  Company Number: US-AMX-002877

PATIENT
  Age: 75 Year
  Sex: Male
  Weight: 64 kg

DRUGS (1)
  1. RELYVRIO [Suspect]
     Active Substance: SODIUM PHENYLBUTYRATE\TAURURSODIOL
     Indication: Amyotrophic lateral sclerosis
     Dosage: 1 SACHET ONCE DAILY FOR 3 WEEKS, THEN 1 SACHET TWICE DAILY
     Route: 048
     Dates: start: 20230328

REACTIONS (6)
  - Peripheral swelling [Unknown]
  - Oedema peripheral [Unknown]
  - Disease progression [Unknown]
  - Mobility decreased [Unknown]
  - Wheelchair user [Unknown]
  - Gait disturbance [Unknown]
